FAERS Safety Report 8600817 (Version 4)
Quarter: 2014Q1

REPORT INFORMATION
  Report Type: Spontaneous
  Country: US (occurrence: US)
  Receive Date: 20120606
  Receipt Date: 20140312
  Transmission Date: 20141002
  Serious: No
  Sender: FDA-Public Use
  Company Number: US-ASTRAZENECA-2012SE34002

PATIENT
  Age: 52 Year
  Sex: Female
  Weight: 71.7 kg

DRUGS (10)
  1. NEXIUM [Suspect]
     Indication: GASTROOESOPHAGEAL REFLUX DISEASE
     Route: 048
     Dates: start: 20110922
  2. CRESTOR [Suspect]
     Indication: BLOOD CHOLESTEROL INCREASED
     Route: 048
     Dates: start: 20110911
  3. DEPAKOTE [Concomitant]
  4. WELLBATRIN [Concomitant]
  5. REMERON [Concomitant]
  6. FLUNASE [Concomitant]
  7. MULTIVITAMIN [Concomitant]
  8. OMEGA 3 FISH OIL [Concomitant]
  9. CALCIUM/MAG/ZINC [Concomitant]
  10. ASPIRIN [Concomitant]

REACTIONS (7)
  - Cough [Unknown]
  - Cough [Unknown]
  - Toothache [Unknown]
  - Laryngitis [Unknown]
  - Malaise [Unknown]
  - Intentional drug misuse [Unknown]
  - Off label use [Unknown]
